FAERS Safety Report 8538809-5 (Version None)
Quarter: 2012Q3

REPORT INFORMATION
  Report Type: 
  Country: None (occurrence: None)
  Receive Date: 20120713
  Receipt Date: 20120705
  Transmission Date: 20120928
  Serious: Yes (Hospitalization)
  Sender: FDA-Public Use
  Company Number: DKLU1082917

PATIENT
  Age: 48 Year
  Sex: Female

DRUGS (4)
  1. OXCARBAZEPINE [Concomitant]
  2. DIVALPROEX (VALPROATE SEMISODIUM) [Concomitant]
  3. LEVETIRACETAM [Concomitant]
  4. ONFI [Suspect]
     Indication: EPILEPSY
     Dosage: 30 MG MILLIGRAM(S), 1 IN 1 D, ORAL
     Route: 048
     Dates: start: 20120326

REACTIONS (1)
  - DYSURIA [None]
